FAERS Safety Report 18164408 (Version 1)
Quarter: 2020Q3

REPORT INFORMATION
  Report Type: Spontaneous
  Country: DE (occurrence: DE)
  Receive Date: 20200818
  Receipt Date: 20200818
  Transmission Date: 20201103
  Serious: Yes (Hospitalization)
  Sender: FDA-Public Use
  Company Number: DE-PFIZER INC-2020314844

PATIENT
  Age: 53 Year
  Sex: Female

DRUGS (9)
  1. HYPNOREX [Suspect]
     Active Substance: LITHIUM CARBONATE
     Dosage: 0.5 DF, 2X/DAY (0.5?0?0.5?0)
  2. SALBUTAMOL [Concomitant]
     Active Substance: ALBUTEROL
     Dosage: 0.1 MG, AS NEEDED
  3. VALPROINSAEURE [Suspect]
     Active Substance: VALPROIC ACID
     Dosage: 500 MG, 2X/DAY  (1?0?1?0)
  4. SERTRALINE HCL [Suspect]
     Active Substance: SERTRALINE HYDROCHLORIDE
     Dosage: 100 MG, 1X/DAY  (0?0?1?0)
  5. MAGNESIUM ASPARTATE [Concomitant]
     Active Substance: MAGNESIUM ASPARTATE
     Dosage: 400 MG, 2X/DAY  (0?0?2?0)
  6. QUETIAPIN PFIZER [Suspect]
     Active Substance: QUETIAPINE
     Dosage: 100 MG, 2X/DAY   (1?0?1?0)
  7. TAPENTADOL [Concomitant]
     Active Substance: TAPENTADOL
     Dosage: 100 MG, 1X/DAY    (1?0?0?0)
  8. PANTOPRAZOLE [Concomitant]
     Active Substance: PANTOPRAZOLE
     Dosage: 40 MG, 1X/DAY  (1?0?0?0)
  9. JODTHYROX [Concomitant]
     Active Substance: LEVOTHYROXINE SODIUM\POTASSIUM IODIDE
     Dosage: 0.1|0.1 MG, (1?0?0?0)

REACTIONS (7)
  - Restlessness [Unknown]
  - Aggression [Recovering/Resolving]
  - Anxiety [Recovering/Resolving]
  - Reflexes abnormal [Recovering/Resolving]
  - Disturbance in attention [Recovering/Resolving]
  - Nervousness [Recovering/Resolving]
  - Agitation [Recovering/Resolving]
